FAERS Safety Report 17009507 (Version 1)
Quarter: 2019Q4

REPORT INFORMATION
  Report Type: Spontaneous
  Country: FR (occurrence: FR)
  Receive Date: 20191108
  Receipt Date: 20191108
  Transmission Date: 20200122
  Serious: Yes (Life-Threatening, Hospitalization)
  Sender: FDA-Public Use
  Company Number: FR-ASTRAZENECA-2019SF58300

PATIENT
  Age: 38 Year
  Sex: Female
  Weight: 72 kg

DRUGS (9)
  1. QUETIAPINE. [Suspect]
     Active Substance: QUETIAPINE
     Indication: TOXICITY TO VARIOUS AGENTS
     Dosage: 13200.0MG ONCE/SINGLE ADMINISTRATION
     Route: 048
     Dates: start: 20190306, end: 20190306
  2. THERALENE [Suspect]
     Active Substance: TRIMEPRAZINE
     Indication: TOXICITY TO VARIOUS AGENTS
     Dosage: 1.2G ONCE/SINGLE ADMINISTRATION
     Route: 048
     Dates: start: 20190306, end: 20190306
  3. NORDAZEPAM [Suspect]
     Active Substance: NORDAZEPAM
     Indication: TOXICITY TO VARIOUS AGENTS
     Dosage: 22.5MG ONCE/SINGLE ADMINISTRATION
     Route: 048
     Dates: start: 20190306, end: 20190306
  4. LOPRAZOLAM [Suspect]
     Active Substance: LOPRAZOLAM
     Indication: TOXICITY TO VARIOUS AGENTS
     Dosage: 88.0MG ONCE/SINGLE ADMINISTRATION
     Route: 048
     Dates: start: 20190306, end: 20190306
  5. ESCITALOPRAM [Suspect]
     Active Substance: ESCITALOPRAM OXALATE
     Indication: TOXICITY TO VARIOUS AGENTS
     Dosage: 90.0MG ONCE/SINGLE ADMINISTRATION
     Route: 048
     Dates: start: 20190306, end: 20190306
  6. TERALITHE [Suspect]
     Active Substance: LITHIUM CARBONATE
     Indication: TOXICITY TO VARIOUS AGENTS
     Dosage: 1600.0MG ONCE/SINGLE ADMINISTRATION
     Route: 048
     Dates: start: 20190306, end: 20190306
  7. TERCIAN [Suspect]
     Active Substance: CYAMEMAZINE
     Indication: TOXICITY TO VARIOUS AGENTS
     Dosage: 2400.0MG ONCE/SINGLE ADMINISTRATION
     Route: 048
     Dates: start: 20190306, end: 20190306
  8. NORFLOXACINE [Suspect]
     Active Substance: NORFLOXACIN
     Indication: TOXICITY TO VARIOUS AGENTS
     Dosage: 4000.0MG ONCE/SINGLE ADMINISTRATION
     Route: 048
     Dates: start: 20190306, end: 20190306
  9. DIAZEPAM. [Suspect]
     Active Substance: DIAZEPAM
     Indication: TOXICITY TO VARIOUS AGENTS
     Dosage: 35.0MG ONCE/SINGLE ADMINISTRATION
     Route: 048
     Dates: start: 20190306, end: 20190306

REACTIONS (6)
  - Serotonin syndrome [Recovered/Resolved]
  - Muscle rigidity [Recovered/Resolved]
  - Coma [Recovered/Resolved]
  - Bundle branch block right [Recovered/Resolved]
  - Pyramidal tract syndrome [Recovered/Resolved]
  - Bradypnoea [Recovered/Resolved]

NARRATIVE: CASE EVENT DATE: 20190306
